FAERS Safety Report 4290156-6 (Version None)
Quarter: 2004Q1

REPORT INFORMATION
  Report Type: 
  Country: None (occurrence: None)
  Receive Date: 20040209
  Receipt Date: 20040123
  Transmission Date: 20041129
  Serious: Yes (Death)
  Sender: FDA-Public Use
  Company Number: 6007042

PATIENT
  Age: 54 Year
  Sex: Female

DRUGS (7)
  1. LEVOTHYROXINE SODIUM [Suspect]
     Indication: HYPOTHYROIDISM
     Dosage: 75,000 MCG (75 MCG), 1 IN 1 D) ORAL
     Route: 048
  2. MIRTAZAPINE [Suspect]
     Indication: DEPRESSION
     Dosage: 30 MG (30  MG, 1 D) ORAL
     Route: 048
     Dates: start: 20040112
  3. XANAX [Suspect]
     Dosage: 2 MG (0,5 MG, 1 D)
     Dates: start: 20040112
  4. LORAZEPAM [Suspect]
     Dosage: (1 MG) ORAL
     Route: 048
  5. TAREG (CAPSULES) (VALSARTAN) [Suspect]
     Indication: HYPERTENSION
     Dosage: 80 MG ORAL
     Route: 048
  6. DAFLON (TABLETS) (DIOSMIN) [Suspect]
     Dosage: 1000 MG (500 MG, 1 D)
     Dates: start: 20040112
  7. .. [Concomitant]

REACTIONS (2)
  - OVERDOSE [None]
  - TREATMENT NONCOMPLIANCE [None]
